APPROVED DRUG PRODUCT: AZELASTINE HYDROCHLORIDE
Active Ingredient: AZELASTINE HYDROCHLORIDE
Strength: 0.137MG/SPRAY
Dosage Form/Route: SPRAY, METERED;NASAL
Application: A212289 | Product #001 | TE Code: AB
Applicant: AUROBINDO PHARMA LTD
Approved: May 8, 2020 | RLD: No | RS: No | Type: RX